FAERS Safety Report 16112426 (Version 2)
Quarter: 2019Q2

REPORT INFORMATION
  Report Type: Report from Study
  Country: JP (occurrence: JP)
  Receive Date: 20190325
  Receipt Date: 20190515
  Transmission Date: 20190711
  Serious: Yes (Death, Other)
  Sender: FDA-Public Use
  Company Number: JP-ACTELION-A-CH2017-163908

PATIENT
  Age: 60 Year
  Sex: Male

DRUGS (15)
  1. ARTIST [Concomitant]
     Active Substance: CARVEDILOL
  2. FEBURIC [Concomitant]
     Active Substance: FEBUXOSTAT
  3. LASIX [Concomitant]
     Active Substance: FUROSEMIDE
  4. FERROMIA [Concomitant]
     Active Substance: SODIUM FERROUS CITRATE
  5. ADCIRCA [Concomitant]
     Active Substance: TADALAFIL
  6. CARELOAD [Concomitant]
     Active Substance: BERAPROST SODIUM
  7. FERROUS CITRATE NA [Concomitant]
     Active Substance: SODIUM FERROUS CITRATE
  8. SAMSCA [Concomitant]
     Active Substance: TOLVAPTAN
  9. ENALAPRIL [Concomitant]
     Active Substance: ENALAPRIL
  10. OXYGEN. [Concomitant]
     Active Substance: OXYGEN
  11. OPSUMIT [Suspect]
     Active Substance: MACITENTAN
     Dosage: 10 MG, QD
     Route: 048
     Dates: start: 20160217, end: 20161103
  12. SELARA [Concomitant]
     Active Substance: EPLERENONE
  13. OPSUMIT [Suspect]
     Active Substance: MACITENTAN
     Indication: PULMONARY ARTERIAL HYPERTENSION
     Dosage: 10 MG, QD
     Route: 048
     Dates: start: 20170308, end: 20181206
  14. MAINTATE [Concomitant]
     Active Substance: BISOPROLOL FUMARATE
  15. NEXIUM [Concomitant]
     Active Substance: ESOMEPRAZOLE MAGNESIUM

REACTIONS (4)
  - Colon cancer [Recovered/Resolved]
  - Anaemia [Recovered/Resolved]
  - Cardio-respiratory arrest [Fatal]
  - Cardiac failure [Fatal]

NARRATIVE: CASE EVENT DATE: 20160222
